FAERS Safety Report 11072098 (Version 1)
Quarter: 2015Q2

REPORT INFORMATION
  Report Type: Spontaneous
  Country: GB (occurrence: GB)
  Receive Date: 20150428
  Receipt Date: 20150428
  Transmission Date: 20150821
  Serious: Yes (Hospitalization, Other)
  Sender: FDA-Public Use
  Company Number: GB-TEVA-557306ACC

PATIENT
  Age: 76 Year
  Sex: Male
  Weight: 89 kg

DRUGS (16)
  1. COCODAMOL [Concomitant]
     Active Substance: ACETAMINOPHEN\CODEINE PHOSPHATE
     Dosage: 8 DOSAGE FORMS DAILY;
     Dates: start: 20140725, end: 20150331
  2. MOMETASONE [Concomitant]
     Active Substance: MOMETASONE
     Dosage: 2 DOSAGE FORMS DAILY;
     Dates: start: 20140725
  3. PARACETAMOL [Concomitant]
     Active Substance: ACETAMINOPHEN
     Indication: PAIN
     Dosage: TAKE 1 OR 2
     Dates: start: 20150320
  4. SALBUTAMOL [Concomitant]
     Active Substance: ALBUTEROL
     Dosage: 8 DOSAGE FORMS DAILY;
     Route: 055
     Dates: start: 20140725
  5. SIMVASTATIN. [Concomitant]
     Active Substance: SIMVASTATIN
     Dosage: 1 DOSAGE FORMS DAILY; AT NIGHT; DAILY DOSE 1 DOSAGE FORMS
     Dates: start: 20140725, end: 20150410
  6. ENOXAPARIN [Concomitant]
     Active Substance: ENOXAPARIN
     Dosage: 1 DOSAGE FORMS DAILY;
     Dates: start: 20150327, end: 20150401
  7. RAMIPRIL. [Concomitant]
     Active Substance: RAMIPRIL
     Dosage: 1 DOSAGE FORMS DAILY;
     Dates: start: 20140725, end: 20150325
  8. ASPIRIN. [Concomitant]
     Active Substance: ASPIRIN
     Dosage: 1 DOSAGE FORMS DAILY;
     Dates: start: 20140725, end: 20150320
  9. FINASTERIDE. [Concomitant]
     Active Substance: FINASTERIDE
     Dosage: 1 DOSAGE FORMS DAILY;
     Dates: start: 20140725, end: 20150410
  10. FOSTAIR [Concomitant]
     Active Substance: BECLOMETHASONE\FORMOTEROL
     Dosage: 4 DOSAGE FORMS DAILY;
     Dates: start: 20140725
  11. CO-AMOXICLAV [Concomitant]
     Active Substance: AMOXICILLIN\CLAVULANIC ACID
     Dosage: 3 DOSAGE FORMS DAILY;
     Dates: start: 20150325, end: 20150401
  12. OMEPRAZOLE. [Concomitant]
     Active Substance: OMEPRAZOLE
     Dosage: 2 DOSAGE FORMS DAILY;
     Dates: start: 20140725
  13. WARFARIN [Suspect]
     Active Substance: WARFARIN
     Dates: start: 20150320
  14. NEFOPAM [Concomitant]
     Active Substance: NEFOPAM
     Dosage: 3 DOSAGE FORMS DAILY;
     Dates: start: 20150320, end: 20150331
  15. ZOPICLONE [Concomitant]
     Active Substance: ZOPICLONE
     Dosage: TAKE ONE OR TWO AT NIGHT
     Dates: start: 20150325
  16. INDAPAMIDE. [Concomitant]
     Active Substance: INDAPAMIDE
     Dosage: 1 DOSAGE FORMS DAILY; EACH MORNING; DAILY DOSE 1 DOSAGE FORMS
     Dates: start: 20140725, end: 20150325

REACTIONS (2)
  - Acute kidney injury [Recovered/Resolved]
  - Purpura [Recovered/Resolved]

NARRATIVE: CASE EVENT DATE: 20150402
